FAERS Safety Report 24965137 (Version 2)
Quarter: 2025Q1

REPORT INFORMATION
  Report Type: Spontaneous
  Country: PL (occurrence: PL)
  Receive Date: 20250213
  Receipt Date: 20250219
  Transmission Date: 20250409
  Serious: Yes (Hospitalization, Disabling, Other)
  Sender: AUROBINDO
  Company Number: PL-Orion Corporation ORION PHARMA-SERT2025-0002

PATIENT
  Age: 48 Year
  Sex: Female

DRUGS (7)
  1. PREGABALIN [Suspect]
     Active Substance: PREGABALIN
     Indication: Bipolar I disorder
     Route: 065
     Dates: start: 2022
  2. SERTRALINE [Suspect]
     Active Substance: SERTRALINE HYDROCHLORIDE
     Indication: Product used for unknown indication
     Route: 065
     Dates: start: 2021
  3. OLANZAPINE [Suspect]
     Active Substance: OLANZAPINE
     Indication: Product use in unapproved indication
     Route: 065
     Dates: start: 2021
  4. LORAZEPAM [Suspect]
     Active Substance: LORAZEPAM
     Indication: Bipolar I disorder
     Route: 065
     Dates: start: 2022
  5. MIANSERIN [Suspect]
     Active Substance: MIANSERIN
     Indication: Product use in unapproved indication
     Route: 065
     Dates: start: 2021
  6. CARIPRAZINE [Suspect]
     Active Substance: CARIPRAZINE
     Indication: Bipolar I disorder
     Route: 065
     Dates: start: 202208
  7. LURASIDONE [Suspect]
     Active Substance: LURASIDONE
     Indication: Bipolar I disorder
     Route: 065
     Dates: start: 2022

REACTIONS (7)
  - Drug ineffective for unapproved indication [Unknown]
  - Aggression [Unknown]
  - Akathisia [Unknown]
  - Anxiety [Unknown]
  - Treatment noncompliance [Unknown]
  - Product use in unapproved indication [Unknown]
  - Hypoaesthesia [Unknown]

NARRATIVE: CASE EVENT DATE: 20210101
